FAERS Safety Report 24974901 (Version 3)
Quarter: 2025Q3

REPORT INFORMATION
  Report Type: Report from Study
  Country: US (occurrence: US)
  Receive Date: 20250217
  Receipt Date: 20250809
  Transmission Date: 20251020
  Serious: Yes (Other)
  Sender: ALEXION PHARMACEUTICALS
  Company Number: US-AstraZeneca-CH-00802851A

PATIENT
  Sex: Female

DRUGS (2)
  1. SOLIRIS [Suspect]
     Active Substance: ECULIZUMAB
     Indication: Myasthenia gravis
     Route: 065
  2. HUMAN IMMUNOGLOBULIN G [Concomitant]
     Active Substance: HUMAN IMMUNOGLOBULIN G
     Route: 065

REACTIONS (10)
  - Cytokine release syndrome [Unknown]
  - Systemic lupus erythematosus [Unknown]
  - Chronic obstructive pulmonary disease [Unknown]
  - Exercise tolerance decreased [Unknown]
  - Pain [Unknown]
  - Joint range of motion decreased [Unknown]
  - Fatigue [Not Recovered/Not Resolved]
  - Arthralgia [Unknown]
  - Mobility decreased [Unknown]
  - Dyspnoea [Unknown]
